FAERS Safety Report 22287466 (Version 2)
Quarter: 2023Q2

REPORT INFORMATION
  Report Type: Spontaneous
  Country: HK (occurrence: HK)
  Receive Date: 20230505
  Receipt Date: 20230526
  Transmission Date: 20230721
  Serious: Yes (Disabling, Other)
  Sender: FDA-Public Use
  Company Number: HK-KYOWAKIRIN-2023AKK006396

PATIENT
  Age: 61 Year
  Sex: Male

DRUGS (3)
  1. DARBEPOETIN ALFA [Suspect]
     Active Substance: DARBEPOETIN ALFA
     Indication: Nephrogenic anaemia
     Dosage: 180 MICROGRAM, QWK
     Route: 058
     Dates: start: 202101, end: 202301
  2. DARBEPOETIN ALFA [Suspect]
     Active Substance: DARBEPOETIN ALFA
     Dosage: UNK
     Route: 065
     Dates: start: 2018
  3. MIRCERA [Suspect]
     Active Substance: METHOXY POLYETHYLENE GLYCOL-EPOETIN BETA
     Indication: Nephrogenic anaemia
     Dosage: 1000 MICROGRAM  (ONCE EVERY 10 DAYS FROM JAN 2023)
     Route: 058
     Dates: start: 202301

REACTIONS (1)
  - Myelodysplastic syndrome with single lineage dysplasia [Unknown]

NARRATIVE: CASE EVENT DATE: 20211101
